FAERS Safety Report 9136396 (Version 1)
Quarter: 2013Q1

REPORT INFORMATION
  Report Type: Spontaneous
  Country: US (occurrence: US)
  Receive Date: 20130304
  Receipt Date: 20130304
  Transmission Date: 20140127
  Serious: Yes (Other)
  Sender: FDA-Public Use
  Company Number: US-ABBOTT-12P-163-0932464-00

PATIENT
  Sex: Male
  Weight: 136.2 kg

DRUGS (3)
  1. ANDROGEL 1% [Suspect]
     Indication: HYPOGONADISM
     Dosage: 8 PUMPS DAILY
     Dates: start: 20110411, end: 20120308
  2. ANDROGEL 1% [Suspect]
     Indication: TESTIS CANCER
  3. UNKNOWN HYPERTENSIVE MEDICATION [Concomitant]
     Indication: PRODUCT USED FOR UNKNOWN INDICATION

REACTIONS (2)
  - Deep vein thrombosis [Recovering/Resolving]
  - Deep vein thrombosis [Recovering/Resolving]
